FAERS Safety Report 8330370-3 (Version None)
Quarter: 2012Q2

REPORT INFORMATION
  Report Type: 
  Country: None (occurrence: None)
  Receive Date: 20120502
  Receipt Date: 20120409
  Transmission Date: 20120825
  Serious: No
  Sender: FDA-Public Use
  Company Number: US-AMGEN-USASP2012006204

PATIENT
  Age: 53 Year
  Sex: Female

DRUGS (1)
  1. ENBREL [Suspect]
     Indication: RHEUMATOID ARTHRITIS
     Dosage: 50 MG, QWK
     Dates: start: 20120124, end: 20120201

REACTIONS (16)
  - INJECTION SITE PAIN [None]
  - BLOOD DISORDER [None]
  - ARTHRALGIA [None]
  - RASH ERYTHEMATOUS [None]
  - INJECTION SITE REACTION [None]
  - PAIN IN EXTREMITY [None]
  - JOINT SWELLING [None]
  - FEELING ABNORMAL [None]
  - HEADACHE [None]
  - OPEN WOUND [None]
  - INJECTION SITE SWELLING [None]
  - INJECTION SITE HAEMATOMA [None]
  - DRY MOUTH [None]
  - INJECTION SITE WARMTH [None]
  - NECK PAIN [None]
  - INJECTION SITE ERYTHEMA [None]
